FAERS Safety Report 4988009-0 (Version None)
Quarter: 2006Q2

REPORT INFORMATION
  Report Type: 
  Country: None (occurrence: None)
  Receive Date: 20060424
  Receipt Date: 20060413
  Transmission Date: 20061013
  Serious: Yes (Hospitalization)
  Sender: FDA-Public Use
  Company Number: 2006-BP-04188RO

PATIENT
  Age: 29 Year
  Sex: Female

DRUGS (1)
  1. METHADONE HCL [Suspect]
     Indication: DRUG ABUSER
     Dosage: 150 MG DAILY

REACTIONS (6)
  - CARDIOMYOPATHY [None]
  - ELECTROCARDIOGRAM QT PROLONGED [None]
  - EXTRASYSTOLES [None]
  - LOSS OF CONSCIOUSNESS [None]
  - PALPITATIONS [None]
  - SYNCOPE [None]
